FAERS Safety Report 10339751 (Version 1)
Quarter: 2014Q3

REPORT INFORMATION
  Report Type: Spontaneous
  Country: DE (occurrence: DE)
  Receive Date: 20140724
  Receipt Date: 20140724
  Transmission Date: 20150326
  Serious: Yes (Other)
  Sender: FDA-Public Use
  Company Number: DE-JNJFOC-20140710927

PATIENT
  Age: 13 Year
  Sex: Female

DRUGS (1)
  1. CONCERTA [Suspect]
     Active Substance: METHYLPHENIDATE HYDROCHLORIDE
     Indication: PRODUCT USED FOR UNKNOWN INDICATION
     Dosage: 4 TABLETS OF 54 MG
     Route: 048
     Dates: start: 20140716, end: 20140716

REACTIONS (8)
  - Tachycardia [Unknown]
  - Chest discomfort [Unknown]
  - Tachypnoea [Unknown]
  - Muscle tightness [Unknown]
  - Accidental exposure to product [Unknown]
  - Vision blurred [Unknown]
  - Chills [Unknown]
  - Overdose [Unknown]

NARRATIVE: CASE EVENT DATE: 20140716
